FAERS Safety Report 13602671 (Version 4)
Quarter: 2017Q3

REPORT INFORMATION
  Report Type: Spontaneous
  Country: US (occurrence: US)
  Receive Date: 20170601
  Receipt Date: 20170724
  Transmission Date: 20171127
  Serious: Yes (Other)
  Sender: FDA-Public Use
  Company Number: US-PFIZER INC-2017237069

PATIENT
  Age: 73 Year
  Sex: Female

DRUGS (3)
  1. XALATAN [Suspect]
     Active Substance: LATANOPROST
     Indication: OCULAR HYPERTENSION
     Dosage: 2 GTT BOTH EYES NIGHTLY
  2. XALATAN [Suspect]
     Active Substance: LATANOPROST
     Dosage: 1 DROP EACH EYE NIGHTLY
  3. XALATAN [Suspect]
     Active Substance: LATANOPROST
     Indication: GLAUCOMA
     Dosage: UNK

REACTIONS (4)
  - Drug dose omission [Unknown]
  - Visual impairment [Unknown]
  - Incorrect dose administered [Unknown]
  - Product quality issue [Unknown]
